FAERS Safety Report 9286316 (Version 2)
Quarter: 2013Q2

REPORT INFORMATION
  Report Type: Report from Study
  Country: JP (occurrence: JP)
  Receive Date: 20130513
  Receipt Date: 20130605
  Transmission Date: 20140414
  Serious: Yes (Death)
  Sender: FDA-Public Use
  Company Number: JP-PFIZER INC-2013143315

PATIENT
  Age: 83 Year
  Sex: Male
  Weight: 55 kg

DRUGS (8)
  1. AZITHROMYCIN [Suspect]
     Indication: PNEUMONIA
     Dosage: 500 MG, 1X/DAY
     Dates: start: 20130120, end: 20130124
  2. ZOSYN [Suspect]
     Indication: PNEUMONIA
     Dosage: 4.5 G, 4X/DAY
     Route: 042
     Dates: start: 20130120, end: 20130124
  3. MEROPEN [Concomitant]
     Indication: PNEUMONIA
     Dosage: 0.5 G, 2X/DAY
     Route: 042
     Dates: start: 20130124, end: 20130127
  4. PRODIF [Concomitant]
     Dosage: 200 MG, 1X/DAY
     Route: 042
     Dates: start: 20130124, end: 20130127
  5. LIPLE [Concomitant]
     Indication: PERIPHERAL CIRCULATORY FAILURE
     Dosage: 10 UG, 1X/DAY
     Route: 042
     Dates: start: 20130124, end: 20130127
  6. PRECEDEX [Concomitant]
     Indication: SEDATION
     Dosage: 200 UG, 1X/DAY
     Route: 042
     Dates: start: 20130120, end: 20130121
  7. OMEPRAL [Concomitant]
     Indication: GASTROOESOPHAGEAL REFLUX DISEASE
     Dosage: 20 MG, 1X/DAY
     Route: 042
     Dates: start: 20130120, end: 20130121
  8. UNASYN S [Concomitant]
     Indication: PNEUMONIA
     Dosage: 3 G, 2X/DAY
     Dates: end: 20130120

REACTIONS (1)
  - Cardiac failure [Fatal]
